FAERS Safety Report 20368465 (Version 2)
Quarter: 2022Q3

REPORT INFORMATION
  Report Type: Report from Study
  Country: EG (occurrence: EG)
  Receive Date: 20220124
  Receipt Date: 20220811
  Transmission Date: 20221027
  Serious: Yes (Hospitalization, Other)
  Sender: FDA-Public Use
  Company Number: EG-NOVARTISPH-NVSC2022EG012350

PATIENT
  Age: 51 Year
  Sex: Female

DRUGS (1)
  1. GILENYA [Suspect]
     Active Substance: FINGOLIMOD HYDROCHLORIDE
     Indication: Multiple sclerosis
     Dosage: 0.5 MG, QD
     Route: 048
     Dates: start: 202012, end: 202110

REACTIONS (7)
  - Cervix carcinoma stage I [Recovered/Resolved]
  - Hepatic enzyme increased [Recovered/Resolved]
  - Vaginal haemorrhage [Recovered/Resolved]
  - Multiple sclerosis relapse [Recovering/Resolving]
  - Dysphemia [Recovering/Resolving]
  - Amnesia [Not Recovered/Not Resolved]
  - Disturbance in attention [Not Recovered/Not Resolved]

NARRATIVE: CASE EVENT DATE: 20201201
